FAERS Safety Report 8454036-4 (Version None)
Quarter: 2012Q2

REPORT INFORMATION
  Report Type: 
  Country: None (occurrence: None)
  Receive Date: 20120620
  Receipt Date: 20120612
  Transmission Date: 20120825
  Serious: Yes (Other)
  Sender: FDA-Public Use
  Company Number: CA-JNJFOC-20120606268

PATIENT
  Age: 28 Year
  Sex: Female

DRUGS (2)
  1. HEPARIN [Concomitant]
     Indication: EMBOLISM VENOUS
  2. XARELTO [Suspect]
     Indication: DEEP VEIN THROMBOSIS
     Route: 048

REACTIONS (1)
  - PULMONARY EMBOLISM [None]
